FAERS Safety Report 7555128-4 (Version None)
Quarter: 2011Q2

REPORT INFORMATION
  Report Type: 
  Country: None (occurrence: None)
  Receive Date: 20110617
  Receipt Date: 20110607
  Transmission Date: 20111010
  Serious: Yes (Other)
  Sender: FDA-Public Use
  Company Number: FR-UCBSA-034765

PATIENT
  Age: 78 Year
  Sex: Female

DRUGS (1)
  1. CIMZIA [Suspect]
     Dosage: 2 OR 3 INJECTIONS
     Route: 058

REACTIONS (2)
  - LOCALISED INFECTION [None]
  - HERPES ZOSTER [None]
